FAERS Safety Report 7226801-2 (Version None)
Quarter: 2011Q1

REPORT INFORMATION
  Report Type: 
  Country: None (occurrence: None)
  Receive Date: 20110105
  Receipt Date: 20101229
  Transmission Date: 20110831
  Serious: Yes (Hospitalization, Other)
  Sender: FDA-Public Use
  Company Number: 2009-198042-NL

PATIENT
  Age: 22 Year
  Sex: Female
  Weight: 72.5755 kg

DRUGS (3)
  1. IBUPROFEN [Concomitant]
  2. CHLOROQUINE [Concomitant]
  3. NUVARING [Suspect]
     Indication: CONTRACEPTION
     Dosage: 1 DF
     Dates: start: 20060901, end: 20070626

REACTIONS (13)
  - OEDEMA PERIPHERAL [None]
  - IN-STENT ARTERIAL RESTENOSIS [None]
  - OVARIAN CYST [None]
  - MUSCLE STRAIN [None]
  - MAY-THURNER SYNDROME [None]
  - MUSCULOSKELETAL CHEST PAIN [None]
  - DYSPNOEA [None]
  - DEEP VEIN THROMBOSIS [None]
  - TELANGIECTASIA [None]
  - NERVOUSNESS [None]
  - PULMONARY EMBOLISM [None]
  - CONTUSION [None]
  - HYPERCOAGULATION [None]
